FAERS Safety Report 5234434-2 (Version None)
Quarter: 2007Q1

REPORT INFORMATION
  Report Type: 
  Country: None (occurrence: None)
  Receive Date: 20070209
  Receipt Date: 20070202
  Transmission Date: 20070707
  Serious: Yes (Other)
  Sender: FDA-Public Use
  Company Number: US-GLAXOSMITHKLINE-A0638166A

PATIENT
  Age: 64 Year
  Sex: Male

DRUGS (3)
  1. PAXIL CR [Suspect]
     Indication: DEPRESSION
     Dosage: 25MG PER DAY
     Route: 048
     Dates: start: 20061201
  2. PAXIL [Suspect]
     Indication: DEPRESSION
     Dosage: 20MG PER DAY
     Route: 048
     Dates: start: 19980101, end: 20061201
  3. NO CONCURRENT MEDICATION [Concomitant]

REACTIONS (4)
  - EJACULATION DELAYED [None]
  - EJACULATION DISORDER [None]
  - MYOCARDIAL INFARCTION [None]
  - SEMEN VOLUME DECREASED [None]
